FAERS Safety Report 8399132-5 (Version None)
Quarter: 2012Q2

REPORT INFORMATION
  Report Type: 
  Country: None (occurrence: None)
  Receive Date: 20120525
  Receipt Date: 20120514
  Transmission Date: 20120825
  Serious: Yes (Hospitalization)
  Sender: FDA-Public Use
  Company Number: SPI201200109

PATIENT
  Sex: Male

DRUGS (2)
  1. AMITIZA [Suspect]
     Indication: CONSTIPATION
     Dosage: ORAL
     Route: 048
     Dates: start: 20120423
  2. SELEGILINE [Concomitant]

REACTIONS (2)
  - PARKINSON'S DISEASE [None]
  - CONDITION AGGRAVATED [None]
